FAERS Safety Report 24830543 (Version 3)
Quarter: 2025Q4

REPORT INFORMATION
  Report Type: Report from Study
  Country: US (occurrence: None)
  Receive Date: 20250110
  Receipt Date: 20251209
  Transmission Date: 20260117
  Serious: Yes (Hospitalization, Other)
  Sender: UCB
  Company Number: US-UCBSA-2023054949

PATIENT
  Age: 18 Year
  Weight: 43.09 kg

DRUGS (3)
  1. FENFLURAMINE [Suspect]
     Active Substance: FENFLURAMINE
     Indication: Lennox-Gastaut syndrome
     Dosage: 6 MILLILITER, 2X/DAY (BID)
  2. FENFLURAMINE [Suspect]
     Active Substance: FENFLURAMINE
     Dosage: 6 MILLILITER, 2X/DAY (BID)
  3. FENFLURAMINE [Suspect]
     Active Substance: FENFLURAMINE
     Dosage: 26.4 MILLIGRAM PER DAY (0.63 MG/KG/DAY)

REACTIONS (4)
  - Dehydration [Not Recovered/Not Resolved]
  - Drug hypersensitivity [Recovered/Resolved]
  - Dental operation [Not Recovered/Not Resolved]
  - Aortic valve sclerosis [Unknown]
